FAERS Safety Report 9260477 (Version 1)
Quarter: 2013Q2

REPORT INFORMATION
  Report Type: Spontaneous
  Country: DE (occurrence: DE)
  Receive Date: 20130429
  Receipt Date: 20130429
  Transmission Date: 20140414
  Serious: Yes (Other)
  Sender: FDA-Public Use
  Company Number: DE-JNJFOC-20130411414

PATIENT
  Age: 58 Year
  Sex: 0

DRUGS (1)
  1. REMICADE [Suspect]
     Indication: PRODUCT USED FOR UNKNOWN INDICATION
     Route: 042
     Dates: end: 20070202

REACTIONS (7)
  - Sarcoma [Recovered/Resolved]
  - Abdominal distension [Unknown]
  - Vulvovaginal dryness [Unknown]
  - Depression [Unknown]
  - Pruritus [Unknown]
  - Weight increased [Unknown]
  - Headache [Unknown]
